FAERS Safety Report 12159622 (Version 1)
Quarter: 2016Q1

REPORT INFORMATION
  Report Type: Spontaneous
  Country: US (occurrence: US)
  Receive Date: 20160308
  Receipt Date: 20160308
  Transmission Date: 20160526
  Serious: Yes (Hospitalization)
  Sender: FDA-Public Use
  Company Number: US-GLAXOSMITHKLINE-US2016032380

PATIENT
  Age: 70 Year
  Sex: Female

DRUGS (5)
  1. IMITREX [Suspect]
     Active Substance: SUMATRIPTAN SUCCINATE
     Indication: MIGRAINE
     Dosage: 6 MG, PRN
     Dates: start: 2008
  2. OXYCODONE [Concomitant]
     Active Substance: OXYCODONE
  3. OESTRADIOL [Concomitant]
     Active Substance: ESTROGENS
  4. LORAZEPAM. [Concomitant]
     Active Substance: LORAZEPAM
  5. SYNTHROID [Concomitant]
     Active Substance: LEVOTHYROXINE SODIUM

REACTIONS (2)
  - Spinal operation [Recovered/Resolved]
  - Expired product administered [Unknown]

NARRATIVE: CASE EVENT DATE: 201306
